FAERS Safety Report 21194423 (Version 1)
Quarter: 2022Q3

REPORT INFORMATION
  Report Type: Spontaneous
  Country: CA (occurrence: CA)
  Receive Date: 20220810
  Receipt Date: 20220810
  Transmission Date: 20221026
  Serious: Yes (Other)
  Sender: FDA-Public Use
  Company Number: None

PATIENT
  Age: 48 Year
  Sex: Female

DRUGS (4)
  1. METHOTREXATE [Suspect]
     Active Substance: METHOTREXATE
     Indication: Arthritis
     Dosage: 1 EVERY 1 WEEKS
     Route: 065
  2. ARAVA [Concomitant]
     Active Substance: LEFLUNOMIDE
     Dosage: EVERY 1 DAYS
  3. FOLIC ACID [Concomitant]
     Active Substance: FOLIC ACID
  4. PREDNISONE [Concomitant]
     Active Substance: PREDNISONE
     Dosage: EVERY 1 DAYS

REACTIONS (5)
  - Abdominal discomfort [Unknown]
  - Fatigue [Unknown]
  - Pain [Unknown]
  - Therapeutic product effect incomplete [Unknown]
  - Tuberculosis [Unknown]
